FAERS Safety Report 7041897-9 (Version None)
Quarter: 2010Q4

REPORT INFORMATION
  Report Type: 
  Country: None (occurrence: None)
  Receive Date: 20101013
  Receipt Date: 20100205
  Transmission Date: 20110411
  Serious: No
  Sender: FDA-Public Use
  Company Number: US-ASTRAZENECA-2010SE05459

PATIENT
  Age: 567 Month
  Sex: Female
  Weight: 58.1 kg

DRUGS (1)
  1. SYMBICORT [Suspect]
     Dosage: 640 UG TOTAL DAILY DOSE
     Route: 055
     Dates: start: 20070101

REACTIONS (2)
  - BRONCHOPNEUMONIA [None]
  - DRUG DOSE OMISSION [None]
